FAERS Safety Report 4440033-2 (Version None)
Quarter: 2004Q3

REPORT INFORMATION
  Report Type: 
  Country: None (occurrence: None)
  Receive Date: 20040831
  Receipt Date: 20040720
  Transmission Date: 20050211
  Serious: No
  Sender: FDA-Public Use
  Company Number: 702177

PATIENT
  Age: 39 Year
  Sex: Male
  Weight: 77.1115 kg

DRUGS (1)
  1. AMEVIVE [Suspect]
     Indication: PSORIASIS
     Dosage: 15 MG QW IM
     Route: 030
     Dates: start: 20040524

REACTIONS (8)
  - BURNING SENSATION [None]
  - COUGH [None]
  - INJECTION SITE PAIN [None]
  - NAUSEA [None]
  - SENSATION OF FOREIGN BODY [None]
  - SKIN BLEEDING [None]
  - SKIN IRRITATION [None]
  - VOMITING [None]
